FAERS Safety Report 7522411-8 (Version None)
Quarter: 2011Q2

REPORT INFORMATION
  Report Type: 
  Country: None (occurrence: None)
  Receive Date: 20110525
  Receipt Date: 20110516
  Transmission Date: 20111010
  Serious: No
  Sender: FDA-Public Use
  Company Number: 2011-00494

PATIENT
  Age: 56 Year
  Sex: Female
  Weight: 65.318 kg

DRUGS (5)
  1. MELOXICAM [Suspect]
     Indication: MUSCULOSKELETAL PAIN
     Dosage: 7.5 MG (7.5 MG,1 IN 1 D),PER ORAL
     Route: 048
     Dates: start: 20110407, end: 20110416
  2. MELOXICAM [Suspect]
     Indication: BACK PAIN
     Dosage: 7.5 MG (7.5 MG,1 IN 1 D),PER ORAL
     Route: 048
     Dates: start: 20110407, end: 20110416
  3. MELOXICAM [Suspect]
     Indication: MYALGIA
     Dosage: 7.5 MG (7.5 MG,1 IN 1 D),PER ORAL
     Route: 048
     Dates: start: 20110407, end: 20110416
  4. RANITIDINE [Concomitant]
  5. BUPROPION HYDROCHLORIDE EXTENDED-RELEASE (WELLBUTRIN XL) (TABLETS) [Concomitant]

REACTIONS (6)
  - EYE IRRITATION [None]
  - THROAT IRRITATION [None]
  - ERYTHEMA [None]
  - RHINALGIA [None]
  - RASH GENERALISED [None]
  - ORAL PAIN [None]
